FAERS Safety Report 4524889-0 (Version None)
Quarter: 2004Q4

REPORT INFORMATION
  Report Type: 
  Country: None (occurrence: None)
  Receive Date: 20041117
  Receipt Date: 20040326
  Transmission Date: 20050328
  Serious: Yes (Other)
  Sender: FDA-Public Use
  Company Number: 2004S1000927

PATIENT
  Age: 41 Year
  Sex: Female

DRUGS (2)
  1. CLOZAPINE [Suspect]
     Dosage: 50MG, QD, ORAL
     Route: 048
     Dates: end: 20040225
  2. CLOZAPINE [Suspect]
     Dosage: 400MG, QD, ORAL
     Route: 048
     Dates: end: 20040225

REACTIONS (2)
  - LEUKOPENIA [None]
  - NEUTROPENIA [None]
